FAERS Safety Report 24937280 (Version 1)
Quarter: 2025Q1

REPORT INFORMATION
  Report Type: Spontaneous
  Country: US (occurrence: None)
  Receive Date: 20250205
  Receipt Date: 20250205
  Transmission Date: 20250409
  Serious: No
  Sender: FDA-CTU
  Company Number: None

PATIENT
  Age: 54 Year
  Sex: Male

DRUGS (23)
  1. TACROLIMUS [Suspect]
     Active Substance: TACROLIMUS
     Indication: Lung transplant
     Dosage: FREQUENCY : TWICE A DAY;?
     Route: 048
     Dates: start: 20240118
  2. MYCOPHENOLIC ACID [Suspect]
     Active Substance: MYCOPHENOLIC ACID
     Indication: Lung transplant
     Dosage: FREQUENCY : TWICE A DAY;?
     Route: 048
     Dates: start: 20220905
  3. TACROLIMUS [Suspect]
     Active Substance: TACROLIMUS
     Dates: start: 20240118, end: 20240826
  4. AZITHROMYCIN ANHYDROUS [Concomitant]
     Active Substance: AZITHROMYCIN ANHYDROUS
     Dates: start: 20240118
  5. amoxicillin-clavulanate 875 mg/125 mg tablet [Concomitant]
  6. AMOXICILLIN SODIUM [Concomitant]
     Active Substance: AMOXICILLIN SODIUM
  7. VITAMIN D2 [Concomitant]
     Active Substance: ERGOCALCIFEROL
     Dates: start: 20250128
  8. PREDNISONE [Concomitant]
     Active Substance: PREDNISONE
     Dates: start: 20240118
  9. metoprolol ER succinate 50 mg tablet [Concomitant]
     Dates: start: 20240118
  10. GABAPENTIN [Concomitant]
     Active Substance: GABAPENTIN
     Dates: start: 20240118
  11. sulfamethoxazole/trimethoprim 400/80 mg [Concomitant]
     Dates: start: 20240118
  12. Humalog 100 unit kwik pen [Concomitant]
     Dates: start: 20240118
  13. sodium chloride 1 gram tablet [Concomitant]
     Dates: start: 20250117
  14. pravastatin 20 mg tablet [Concomitant]
     Dates: start: 20240118
  15. ELIQUIS [Concomitant]
     Active Substance: APIXABAN
     Dates: start: 20241122
  16. famotidine 20 mg tablet [Concomitant]
     Dates: start: 20240628
  17. FAMCICLOVIR [Concomitant]
     Active Substance: FAMCICLOVIR
     Dates: start: 20240118
  18. calcium citrate + D3 max tablet [Concomitant]
     Dates: start: 20240118
  19. azelastine 0.1 % nasal spray [Concomitant]
     Dates: start: 20240620
  20. Humulin N 100 unit kwik pen [Concomitant]
     Dates: start: 20240118
  21. AMLODIPINE [Concomitant]
     Active Substance: AMLODIPINE BESYLATE
     Dates: start: 20240118
  22. QUETIAPINE FUMARATE [Concomitant]
     Active Substance: QUETIAPINE FUMARATE
     Dates: start: 20240118
  23. ALBUTEROL [Concomitant]
     Active Substance: ALBUTEROL
     Dates: start: 20230504

REACTIONS (1)
  - Urinary tract infection [None]

NARRATIVE: CASE EVENT DATE: 20250128
